FAERS Safety Report 8079875-3 (Version None)
Quarter: 2012Q1

REPORT INFORMATION
  Report Type: 
  Country: None (occurrence: None)
  Receive Date: 20120128
  Receipt Date: 20110831
  Transmission Date: 20120608
  Serious: No
  Sender: FDA-Public Use
  Company Number: US-ABBOTT-11P-163-0850826-00

PATIENT
  Sex: Female

DRUGS (2)
  1. HUMIRA [Suspect]
     Indication: PSORIATIC ARTHROPATHY
     Dates: start: 20101201
  2. HUMIRA [Suspect]
     Dates: start: 20110828

REACTIONS (2)
  - UPPER RESPIRATORY TRACT INFECTION [None]
  - DERMATITIS CONTACT [None]
